FAERS Safety Report 9306511 (Version 2)
Quarter: 2013Q2

REPORT INFORMATION
  Report Type: Spontaneous
  Country: US (occurrence: None)
  Receive Date: 20130506
  Receipt Date: 20130520
  Transmission Date: 20140414
  Serious: Yes (Other)
  Sender: FDA-Public Use
  Company Number: 2013035790

PATIENT
  Sex: Male

DRUGS (1)
  1. IVIG (IMMUNE GLOBULIN INTRAVENOUS (HUMAN)) [Suspect]
     Indication: MYASTHENIA GRAVIS
     Dosage: (INTRAVENOUS (NOT OTHERWISE SPECIFIED))
     Route: 042

REACTIONS (2)
  - Meningitis aseptic [None]
  - Off label use [None]
